FAERS Safety Report 9231675 (Version 3)
Quarter: 2014Q1

REPORT INFORMATION
  Report Type: Report from Study
  Country: FR (occurrence: FR)
  Receive Date: 20130415
  Receipt Date: 20140324
  Transmission Date: 20141002
  Serious: Yes (Hospitalization)
  Sender: FDA-Public Use
  Company Number: FR-ROCHE-1214278

PATIENT
  Age: 47 Year
  Sex: Male

DRUGS (3)
  1. PEG-INTERFERON ALFA 2A [Suspect]
     Indication: HEPATITIS C
     Route: 058
     Dates: start: 20130129
  2. RIBAVIRIN [Suspect]
     Indication: HEPATITIS C
     Dosage: DAILY
     Route: 048
     Dates: start: 20130129
  3. TELAPREVIR [Suspect]
     Indication: HEPATITIS C
     Dosage: DAILY
     Route: 048
     Dates: start: 20130129

REACTIONS (1)
  - Restlessness [Recovered/Resolved]
